FAERS Safety Report 24233381 (Version 1)
Quarter: 2024Q3

REPORT INFORMATION
  Report Type: Spontaneous
  Country: US (occurrence: US)
  Receive Date: 20240821
  Receipt Date: 20240821
  Transmission Date: 20241017
  Serious: No
  Sender: DERMAVANT SCIENCES
  Company Number: US-Dermavant-001225

PATIENT
  Age: 31 Year
  Sex: Male

DRUGS (2)
  1. VTAMA [Suspect]
     Active Substance: TAPINAROF
  2. CLOZAPINE [Suspect]
     Active Substance: CLOZAPINE

REACTIONS (1)
  - Neutrophil count decreased [Unknown]
